FAERS Safety Report 4884322-6 (Version None)
Quarter: 2005Q4

REPORT INFORMATION
  Report Type: 
  Country: None (occurrence: None)
  Receive Date: 20051201
  Receipt Date: 20050828
  Transmission Date: 20060501
  Serious: No
  Sender: FDA-Public Use
  Company Number: 2005PV001673

PATIENT
  Age: 55 Year
  Sex: Female
  Weight: 107.9561 kg

DRUGS (1)
  1. BYETTA [Suspect]
     Dosage: SEE IMAGE
     Route: 058
     Dates: start: 20050828

REACTIONS (6)
  - DECREASED APPETITE [None]
  - EARLY SATIETY [None]
  - EPISTAXIS [None]
  - ERUCTATION [None]
  - NAUSEA [None]
  - VOMITING [None]
